FAERS Safety Report 13759560 (Version 1)
Quarter: 2017Q3

REPORT INFORMATION
  Report Type: Spontaneous
  Country: ES (occurrence: ES)
  Receive Date: 20170717
  Receipt Date: 20170717
  Transmission Date: 20171127
  Serious: Yes (Hospitalization)
  Sender: FDA-Public Use
  Company Number: ES-ASTRAZENECA-2017SE72893

PATIENT
  Sex: Male

DRUGS (2)
  1. BRETARIS [Suspect]
     Active Substance: ACLIDINIUM BROMIDE
     Route: 055
  2. BRIMICA [Suspect]
     Active Substance: ACLIDINIUM BROMIDE\FORMOTEROL FUMARATE
     Route: 055

REACTIONS (5)
  - Headache [Recovered/Resolved]
  - Urinary retention [Recovered/Resolved]
  - Palpitations [Recovered/Resolved]
  - Dizziness [Recovered/Resolved]
  - Vision blurred [Recovered/Resolved]
